FAERS Safety Report 6469827-9 (Version None)
Quarter: 2009Q4

REPORT INFORMATION
  Report Type: 
  Country: None (occurrence: None)
  Receive Date: 20091203
  Receipt Date: 20080317
  Transmission Date: 20100525
  Serious: Yes (Life-Threatening, Hospitalization)
  Sender: FDA-Public Use
  Company Number: CN-ELI_LILLY_AND_COMPANY-CN200711005186

PATIENT
  Sex: Male
  Weight: 70 kg

DRUGS (6)
  1. PEMETREXED [Suspect]
     Indication: SMALL CELL LUNG CANCER EXTENSIVE STAGE
     Dosage: 500 MG/M2, DAY 1 OF 21 DAY CYCLE
     Route: 042
     Dates: start: 20071022
  2. CARBOPLATIN [Suspect]
     Indication: SMALL CELL LUNG CANCER EXTENSIVE STAGE
     Dosage: AUC DAY 1 OF 21 DAY CYCLE
     Route: 042
     Dates: start: 20071022
  3. FOLIC ACID [Concomitant]
     Indication: SUPPLEMENTATION THERAPY
     Dosage: 0.4 MG, DAILY (1/D)
     Route: 048
  4. VITAMIN B-12 [Concomitant]
     Indication: SUPPLEMENTATION THERAPY
     Dosage: 1 MG, UNK
     Route: 030
  5. DEXAMETHASONE TAB [Concomitant]
     Indication: SUPPLEMENTATION THERAPY
     Dosage: 3.75 MG, 2/D
     Route: 048
  6. PAMIDRONATE DISODIUM [Concomitant]
     Indication: METASTASES TO BONE
     Dates: start: 20071113, end: 20071114

REACTIONS (4)
  - DIARRHOEA [None]
  - DIPLEGIA [None]
  - INFECTION [None]
  - PROCTITIS [None]
